FAERS Safety Report 5507266-5 (Version None)
Quarter: 2007Q4

REPORT INFORMATION
  Report Type: 
  Country: None (occurrence: None)
  Receive Date: 20071106
  Receipt Date: 20071030
  Transmission Date: 20080405
  Serious: Yes (Hospitalization)
  Sender: FDA-Public Use
  Company Number: PHEH2007US11703

PATIENT
  Age: 38 Year
  Sex: Female
  Weight: 119.73 kg

DRUGS (9)
  1. ZELNORM [Suspect]
     Indication: GASTROOESOPHAGEAL REFLUX DISEASE
     Dosage: 6MG, UNK
     Route: 048
     Dates: start: 20060101, end: 20070401
  2. ZYPREXA [Concomitant]
  3. ASPIRIN [Concomitant]
  4. PRILOSEC [Concomitant]
     Indication: GASTROOESOPHAGEAL REFLUX DISEASE
  5. ZANTAC [Concomitant]
     Indication: GASTROOESOPHAGEAL REFLUX DISEASE
     Dosage: CASUAL USE
     Route: 048
  6. POTASSIUM CHLORIDE [Concomitant]
     Dosage: 10 MEQ QD
     Route: 048
  7. LOTREL [Concomitant]
     Indication: BLOOD PRESSURE
     Dosage: 5/20 MG QD
  8. HYDROCHLOROTHIAZIDE [Concomitant]
     Indication: BLOOD PRESSURE
     Dosage: 12.5 MG QD
  9. LOVASTATIN [Concomitant]
     Indication: BLOOD CHOLESTEROL
     Dosage: 40 MG, QD
     Route: 048

REACTIONS (3)
  - CHEST PAIN [None]
  - DRUG INEFFECTIVE [None]
  - KNEE OPERATION [None]
